FAERS Safety Report 11298175 (Version 1)
Quarter: 2015Q3

REPORT INFORMATION
  Report Type: Spontaneous
  Country: US (occurrence: US)
  Receive Date: 20150722
  Receipt Date: 20150722
  Transmission Date: 20151125
  Serious: No
  Sender: FDA-Public Use
  Company Number: US-ELI_LILLY_AND_COMPANY-US201105002766

PATIENT
  Age: 18 Year
  Sex: Male
  Weight: 82.99 kg

DRUGS (9)
  1. HUMATROPE [Suspect]
     Active Substance: SOMATROPIN
     Indication: FAILURE TO THRIVE
     Dosage: 2.8 MG, UNK
     Route: 058
     Dates: start: 20110308
  2. ANAFRANIL [Concomitant]
     Active Substance: CLOMIPRAMINE HYDROCHLORIDE
  3. DEPAKOTE [Concomitant]
     Active Substance: DIVALPROEX SODIUM
  4. ZOLOFT [Concomitant]
     Active Substance: SERTRALINE HYDROCHLORIDE
  5. SEROQUEL [Concomitant]
     Active Substance: QUETIAPINE FUMARATE
  6. CONCERTA [Concomitant]
     Active Substance: METHYLPHENIDATE HYDROCHLORIDE
  7. LAMICTAL [Concomitant]
     Active Substance: LAMOTRIGINE
  8. DASKIL [Concomitant]
  9. LAMICTAL [Concomitant]
     Active Substance: LAMOTRIGINE

REACTIONS (1)
  - Exostosis [Not Recovered/Not Resolved]

NARRATIVE: CASE EVENT DATE: 20110426
